FAERS Safety Report 23521852 (Version 2)
Quarter: 2024Q1

REPORT INFORMATION
  Report Type: Spontaneous
  Country: CN (occurrence: CN)
  Receive Date: 20240214
  Receipt Date: 20240227
  Transmission Date: 20240409
  Serious: Yes (Death, Other)
  Sender: FDA-Public Use
  Company Number: CN-SUN PHARMACEUTICAL INDUSTRIES LTD-2024R1-430724

PATIENT
  Age: 59 Year
  Sex: Male

DRUGS (7)
  1. CARBOPLATIN [Suspect]
     Active Substance: CARBOPLATIN
     Indication: Non-small cell lung cancer stage IIIB
     Dosage: 450 MILLIGRAM
     Route: 065
     Dates: start: 20211217
  2. CARBOPLATIN [Suspect]
     Active Substance: CARBOPLATIN
     Dosage: 500 MILLIGRAM
     Route: 065
     Dates: start: 20210114
  3. CARBOPLATIN [Suspect]
     Active Substance: CARBOPLATIN
     Dosage: 500 MILLIGRAM
     Route: 065
     Dates: start: 20210207
  4. PACLITAXEL [Suspect]
     Active Substance: PACLITAXEL
     Indication: Non-small cell lung cancer stage IIIB
     Dosage: 240 MILLIGRAM
     Route: 065
     Dates: start: 20211217
  5. PACLITAXEL [Suspect]
     Active Substance: PACLITAXEL
     Dosage: 240 MILLIGRAM
     Route: 065
     Dates: start: 20210114
  6. PACLITAXEL [Suspect]
     Active Substance: PACLITAXEL
     Dosage: 240 MILLIGRAM
     Route: 065
     Dates: start: 20210207
  7. LEVOTHYROXINE [Concomitant]
     Active Substance: LEVOTHYROXINE\LEVOTHYROXINE SODIUM
     Indication: Hypothyroidism
     Dosage: 75 MILLIGRAM, DAILY
     Route: 065

REACTIONS (1)
  - Drug ineffective [Fatal]
